FAERS Safety Report 19024788 (Version 1)
Quarter: 2021Q1

REPORT INFORMATION
  Report Type: Spontaneous
  Country: US (occurrence: US)
  Receive Date: 20210317
  Receipt Date: 20210317
  Transmission Date: 20210420
  Serious: Yes (Life-Threatening, Hospitalization, Disabling)
  Sender: FDA-Public Use
  Company Number: None

PATIENT
  Age: 64 Year
  Sex: Male
  Weight: 118 kg

DRUGS (1)
  1. BAMLANIVIMAB. [Suspect]
     Active Substance: BAMLANIVIMAB
     Indication: COVID-19
     Dosage: ?          OTHER FREQUENCY:ONCE;?
     Route: 040
     Dates: start: 20210228, end: 20210228

REACTIONS (7)
  - Unresponsive to stimuli [None]
  - Diplopia [None]
  - Respiratory failure [None]
  - Dysphagia [None]
  - Asthenia [None]
  - Eyelid ptosis [None]
  - Guillain-Barre syndrome [None]

NARRATIVE: CASE EVENT DATE: 20210311
